FAERS Safety Report 6216757-3 (Version None)
Quarter: 2009Q2

REPORT INFORMATION
  Report Type: 
  Country: None (occurrence: None)
  Receive Date: 20090603
  Receipt Date: 20090603
  Transmission Date: 20091009
  Serious: No
  Sender: FDA-Public Use
  Company Number: None

PATIENT
  Sex: Female
  Weight: 145.151 kg

DRUGS (4)
  1. BUPROPION XL 300MG NDC #00093535156 [Suspect]
     Indication: MAJOR DEPRESSION
     Dosage: 300MG ONCE DAILY PO
     Route: 048
     Dates: start: 20090216, end: 20090316
  2. BUPROPION XL 300MG NDC # 00591333230 [Suspect]
     Indication: MAJOR DEPRESSION
     Dosage: 300MG ONCE DAILY PO
     Route: 048
     Dates: start: 20090316, end: 20090602
  3. TOPAMAX [Concomitant]
  4. LO/OVRAL [Concomitant]

REACTIONS (4)
  - CRYING [None]
  - IRRITABILITY [None]
  - PRODUCT SUBSTITUTION ISSUE [None]
  - TREATMENT FAILURE [None]
